FAERS Safety Report 7365732-4 (Version None)
Quarter: 2011Q1

REPORT INFORMATION
  Report Type: 
  Country: None (occurrence: None)
  Receive Date: 20110322
  Receipt Date: 20110321
  Transmission Date: 20110831
  Serious: No
  Sender: FDA-Public Use
  Company Number: US-PFIZER INC-2011028730

PATIENT
  Sex: Female

DRUGS (5)
  1. VALSARTAN [Concomitant]
     Dosage: 320 MG, UNK
     Route: 048
  2. WARFARIN [Suspect]
     Indication: ANTICOAGULANT THERAPY
     Dosage: 5 MG, 1X/DAY
     Route: 048
  3. CADUET [Suspect]
     Indication: HYPERTENSION
     Dosage: 10 MG/20 MG, 1X/DAY
     Route: 048
     Dates: end: 20101101
  4. CADUET [Suspect]
     Indication: BLOOD CHOLESTEROL INCREASED
  5. NEXIUM [Concomitant]
     Indication: GASTROOESOPHAGEAL REFLUX DISEASE
     Dosage: UNK
     Route: 048

REACTIONS (2)
  - EPISTAXIS [None]
  - ATRIAL FIBRILLATION [None]
